FAERS Safety Report 23537775 (Version 1)
Quarter: 2024Q1

REPORT INFORMATION
  Report Type: Spontaneous
  Country: GB (occurrence: GB)
  Receive Date: 20240219
  Receipt Date: 20240219
  Transmission Date: 20240410
  Serious: Yes (Disabling)
  Sender: FDA-Public Use
  Company Number: GB-MHRA-MED-202402051255182940-GVSFZ

PATIENT
  Age: 76 Year
  Sex: Female
  Weight: 86 kg

DRUGS (1)
  1. DOXAZOSIN [Suspect]
     Active Substance: DOXAZOSIN MESYLATE
     Indication: Adverse drug reaction
     Dosage: 4 MILLIGRAM
     Route: 065
     Dates: start: 20240204, end: 20240205

REACTIONS (2)
  - Presyncope [Not Recovered/Not Resolved]
  - Tremor [Not Recovered/Not Resolved]

NARRATIVE: CASE EVENT DATE: 20240205
